FAERS Safety Report 9595234 (Version 1)
Quarter: 2013Q3

REPORT INFORMATION
  Report Type: Spontaneous
  Country: US (occurrence: None)
  Receive Date: 20130927
  Receipt Date: 20130927
  Transmission Date: 20140515
  Serious: Yes (Hospitalization)
  Sender: FDA-Public Use
  Company Number: CABO-13003082

PATIENT
  Age: 48 Year
  Sex: 0

DRUGS (2)
  1. COMETRIQ (CABOZANTINIB) CAPSULE [Suspect]
     Indication: BRAIN NEOPLASM MALIGNANT
     Route: 048
     Dates: start: 20130720, end: 20130726
  2. PREDNISONE (PREDNISONE) [Concomitant]

REACTIONS (1)
  - Cerebral haemorrhage [None]
